FAERS Safety Report 6242219-3 (Version None)
Quarter: 2009Q2

REPORT INFORMATION
  Report Type: 
  Country: None (occurrence: None)
  Receive Date: 20090624
  Receipt Date: 20090619
  Transmission Date: 20091009
  Serious: Yes (Hospitalization)
  Sender: FDA-Public Use
  Company Number: US-BRISTOL-MYERS SQUIBB COMPANY-14674279

PATIENT
  Age: 1 Decade
  Sex: Female

DRUGS (1)
  1. ABILIFY [Suspect]
     Dosage: FOR 3 TO 4 YRS

REACTIONS (1)
  - RENAL FAILURE ACUTE [None]
